FAERS Safety Report 5962816-X (Version None)
Quarter: 2008Q4

REPORT INFORMATION
  Report Type: 
  Country: None (occurrence: None)
  Receive Date: 20081119
  Receipt Date: 20081119
  Transmission Date: 20090506
  Serious: Yes (Hospitalization)
  Sender: FDA-Public Use
  Company Number: None

PATIENT
  Sex: Female
  Weight: 78 kg

DRUGS (7)
  1. HERCEPTIN [Suspect]
     Dosage: 150MG
     Dates: end: 20081113
  2. ADVAIR HFA [Concomitant]
  3. AMLODIPINE BESYLATE [Concomitant]
  4. ASPIRIN [Concomitant]
  5. HYDROCHLOROTHIAZIDE [Concomitant]
  6. LISINOPRIL [Concomitant]
  7. METFORMIN HCL [Concomitant]

REACTIONS (9)
  - ACUTE CORONARY SYNDROME [None]
  - CARDIAC FAILURE CONGESTIVE [None]
  - DYSPNOEA [None]
  - LUNG INFILTRATION [None]
  - ORTHOPNOEA [None]
  - PRODUCTIVE COUGH [None]
  - RALES [None]
  - TACHYCARDIA [None]
  - TACHYPNOEA [None]
